FAERS Safety Report 19681462 (Version 2)
Quarter: 2021Q3

REPORT INFORMATION
  Report Type: Report from Study
  Country: KR (occurrence: KR)
  Receive Date: 20210810
  Receipt Date: 20210816
  Transmission Date: 20211014
  Serious: Yes (Hospitalization)
  Sender: FDA-Public Use
  Company Number: KR-EISAI MEDICAL RESEARCH-EC-2021-097534

PATIENT
  Age: 76 Year
  Sex: Female
  Weight: 55.1 kg

DRUGS (16)
  1. LENVATINIB [Suspect]
     Active Substance: LENVATINIB
     Indication: MALIGNANT MELANOMA STAGE IV
  2. MIARYL [Concomitant]
     Dates: start: 201701
  3. BEARDIPINE [Concomitant]
     Dates: start: 20210510
  4. WITH [Concomitant]
     Dates: start: 20210709
  5. MVH [Concomitant]
     Active Substance: VITAMINS
     Dates: start: 20210709, end: 20210715
  6. PEMBROLIZUMAB. [Suspect]
     Active Substance: PEMBROLIZUMAB
     Indication: MALIGNANT MELANOMA STAGE IV
     Route: 042
     Dates: start: 20210709, end: 20210709
  7. DIOVAN [Concomitant]
     Active Substance: VALSARTAN
     Dates: start: 20210521
  8. LENVATINIB [Suspect]
     Active Substance: LENVATINIB
     Indication: MALIGNANT MELANOMA STAGE III
     Route: 048
     Dates: start: 20210430, end: 20210723
  9. ZEMIMET [Concomitant]
     Dates: start: 201701
  10. DIABEX [Concomitant]
     Active Substance: METFORMIN HYDROCHLORIDE
     Dates: start: 201701
  11. SUVASTIN [Concomitant]
     Dates: start: 201701
  12. SOLONDO [Concomitant]
     Active Substance: PREDNISOLONE
     Dates: start: 20210709
  13. SMOFLIPID [Concomitant]
     Active Substance: FISH OIL\MEDIUM-CHAIN TRIGLYCERIDES\OLIVE OIL\SOYBEAN OIL
     Dates: start: 20210709, end: 20210715
  14. HARMONILAN [Concomitant]
     Dates: start: 20210709
  15. PEMBROLIZUMAB. [Suspect]
     Active Substance: PEMBROLIZUMAB
     Indication: MALIGNANT MELANOMA STAGE III
     Route: 042
     Dates: start: 20210430, end: 20210618
  16. MEGACE F [Concomitant]
     Dates: start: 20210715

REACTIONS (1)
  - Cholecystitis acute [Recovered/Resolved]

NARRATIVE: CASE EVENT DATE: 20210723
